FAERS Safety Report 7263468-1 (Version None)
Quarter: 2011Q1

REPORT INFORMATION
  Report Type: 
  Country: None (occurrence: None)
  Receive Date: 20110130
  Receipt Date: 20101202
  Transmission Date: 20110831
  Serious: No
  Sender: FDA-Public Use
  Company Number: US-ABBOTT-10P-163-0689338-00

PATIENT
  Sex: Female
  Weight: 81.266 kg

DRUGS (20)
  1. HUMIRA [Suspect]
     Indication: RHEUMATOID ARTHRITIS
     Dates: start: 20070101, end: 20100601
  2. OMEPRAZOLE [Concomitant]
     Indication: PROPHYLAXIS AGAINST GASTROINTESTINAL ULCER
  3. DIGOXIN [Concomitant]
     Indication: CARDIAC FAILURE CONGESTIVE
  4. SERTRALINE HYDROCHLORIDE [Concomitant]
     Indication: DEPRESSION
  5. DAYPRO [Concomitant]
     Indication: RHEUMATOID ARTHRITIS
  6. METOPROLOL [Concomitant]
     Indication: CARDIAC FAILURE CONGESTIVE
  7. SIMVASTATIN [Concomitant]
     Indication: HYPERLIPIDAEMIA
  8. METHOTREXATE [Suspect]
     Indication: RHEUMATOID ARTHRITIS
  9. PREDNISONE [Suspect]
     Indication: RHEUMATOID ARTHRITIS
  10. HUMIRA [Suspect]
     Dates: start: 20100601
  11. GLIPIZIDE [Suspect]
     Indication: DIABETES MELLITUS
  12. SPIRONOLACTONE [Concomitant]
     Indication: CARDIAC FAILURE CONGESTIVE
  13. POTASSIUM [Concomitant]
     Indication: MINERAL SUPPLEMENTATION
  14. METHOCARBIMOL [Concomitant]
     Indication: PAIN
  15. ENALAPRIL MALEATE [Concomitant]
     Indication: CARDIAC FAILURE CONGESTIVE
  16. AMILORIDE HYDROCHLORIDE [Concomitant]
     Indication: CARDIAC FAILURE CONGESTIVE
  17. TORSEMIDE [Concomitant]
     Indication: CARDIAC FAILURE CONGESTIVE
  18. MAGNESIUM OXIDE [Concomitant]
     Indication: MINERAL SUPPLEMENTATION
  19. METFORMIN [Concomitant]
     Indication: DIABETES MELLITUS
  20. TRAMADOL HCL [Concomitant]
     Indication: PAIN

REACTIONS (6)
  - URINARY TRACT INFECTION [None]
  - CELLULITIS [None]
  - WEIGHT DECREASED [None]
  - EPISTAXIS [None]
  - NASAL DISCOMFORT [None]
  - SINUSITIS [None]
